FAERS Safety Report 10592399 (Version 2)
Quarter: 2014Q4

REPORT INFORMATION
  Report Type: Report from Study
  Country: NL (occurrence: NL)
  Receive Date: 20141119
  Receipt Date: 20141127
  Transmission Date: 20150529
  Serious: Yes (Hospitalization)
  Sender: FDA-Public Use
  Company Number: NL-ROCHE-1489255

PATIENT
  Age: 57 Year
  Sex: Male

DRUGS (11)
  1. RITUXIMAB [Suspect]
     Active Substance: RITUXIMAB
     Indication: CHRONIC GRAFT VERSUS HOST DISEASE
     Dosage: WEEKLY DOSE FOR 4 WEEKS
     Route: 042
     Dates: start: 20131210
  2. VALACICLOVIR [Concomitant]
     Active Substance: VALACYCLOVIR HYDROCHLORIDE
     Indication: PROPHYLAXIS
     Route: 048
  3. COTRIMOXAZOLE [Concomitant]
     Active Substance: SULFAMETHOXAZOLE\TRIMETHOPRIM
     Indication: PROPHYLAXIS
     Route: 048
  4. LENALIDOMIDE [Concomitant]
     Active Substance: LENALIDOMIDE
     Indication: PLASMA CELL MYELOMA
     Route: 048
     Dates: start: 20140728
  5. FUROSEMIDE. [Concomitant]
     Active Substance: FUROSEMIDE
     Indication: FLUID RETENTION
     Route: 048
  6. RITUXIMAB [Suspect]
     Active Substance: RITUXIMAB
     Route: 065
     Dates: start: 20140103
  7. NILOTINIB [Suspect]
     Active Substance: NILOTINIB
     Indication: CHRONIC GRAFT VERSUS HOST DISEASE
     Dosage: 2DD
     Route: 065
     Dates: start: 20140113, end: 20140713
  8. ACENOCOUMAROL [Concomitant]
     Active Substance: ACENOCOUMAROL
     Indication: DEEP VEIN THROMBOSIS
     Dosage: DOSE ACCORDING TO SCHEDULE
     Route: 048
  9. RITUXIMAB [Suspect]
     Active Substance: RITUXIMAB
     Route: 065
     Dates: start: 20131217
  10. LEVOCETIRIZINE [Concomitant]
     Active Substance: LEVOCETIRIZINE
     Indication: PRURITUS
     Route: 048
  11. RITUXIMAB [Suspect]
     Active Substance: RITUXIMAB
     Route: 065
     Dates: start: 20131227

REACTIONS (2)
  - Pleural effusion [Unknown]
  - Chills [Unknown]

NARRATIVE: CASE EVENT DATE: 20141104
